FAERS Safety Report 5386309-6 (Version None)
Quarter: 2007Q3

REPORT INFORMATION
  Report Type: 
  Country: None (occurrence: None)
  Receive Date: 20070710
  Receipt Date: 20070625
  Transmission Date: 20080115
  Serious: Yes (Death)
  Sender: FDA-Public Use
  Company Number: US020441

PATIENT
  Age: 53 Year
  Sex: Female

DRUGS (1)
  1. ACTIQ [Suspect]
     Dosage: 800 UG BUCCAL
     Route: 002
     Dates: start: 20060911, end: 20060911

REACTIONS (8)
  - CARDIAC ARREST [None]
  - COMA [None]
  - COMPLETED SUICIDE [None]
  - CONVULSION [None]
  - PUPIL FIXED [None]
  - RESPIRATORY ARREST [None]
  - VENTRICULAR FIBRILLATION [None]
  - VENTRICULAR TACHYCARDIA [None]
